FAERS Safety Report 7621111-3 (Version None)
Quarter: 2011Q3

REPORT INFORMATION
  Report Type: 
  Country: None (occurrence: None)
  Receive Date: 20110719
  Receipt Date: 20100708
  Transmission Date: 20111222
  Serious: No
  Sender: FDA-Public Use
  Company Number: US-KINGPHARMUSA00001-K201000858

PATIENT
  Sex: Female
  Weight: 49.887 kg

DRUGS (1)
  1. LEVOXYL [Suspect]
     Indication: THYROIDECTOMY
     Dosage: 75 MCG, QD
     Route: 048
     Dates: start: 20100301

REACTIONS (5)
  - VOMITING [None]
  - HYPERSENSITIVITY [None]
  - NAUSEA [None]
  - DIARRHOEA [None]
  - ABDOMINAL PAIN [None]
